FAERS Safety Report 6583569-0 (Version None)
Quarter: 2010Q1

REPORT INFORMATION
  Report Type: 
  Country: None (occurrence: None)
  Receive Date: 20100216
  Receipt Date: 20100205
  Transmission Date: 20100710
  Serious: Yes (Hospitalization, Disabling)
  Sender: FDA-Public Use
  Company Number: DE-BAXTER-2010BH002798

PATIENT
  Age: 62 Year
  Sex: Female

DRUGS (15)
  1. IFOSFAMIDE [Suspect]
     Indication: DIFFUSE LARGE B-CELL LYMPHOMA
     Route: 065
     Dates: start: 20080418, end: 20080418
  2. IFOSFAMIDE [Suspect]
     Route: 065
     Dates: start: 20080604, end: 20080604
  3. RITUXIMAB [Suspect]
     Indication: DIFFUSE LARGE B-CELL LYMPHOMA
     Route: 065
     Dates: start: 20080415, end: 20080415
  4. RITUXIMAB [Suspect]
     Route: 065
     Dates: start: 20080417, end: 20080417
  5. RITUXIMAB [Suspect]
     Route: 065
     Dates: start: 20080603, end: 20080603
  6. ETOPOSIDE [Suspect]
     Indication: DIFFUSE LARGE B-CELL LYMPHOMA
     Route: 065
     Dates: start: 20080417, end: 20080417
  7. ETOPOSIDE [Suspect]
     Route: 065
     Dates: start: 20080418, end: 20080418
  8. ETOPOSIDE [Suspect]
     Route: 065
     Dates: start: 20080603, end: 20080603
  9. ETOPOSIDE [Suspect]
     Route: 065
     Dates: start: 20080419, end: 20080419
  10. ETOPOSIDE [Suspect]
     Route: 065
     Dates: start: 20080604, end: 20080604
  11. ETOPOSIDE [Suspect]
     Route: 065
     Dates: start: 20080605, end: 20080605
  12. CARBOPLATIN [Suspect]
     Indication: DIFFUSE LARGE B-CELL LYMPHOMA
     Route: 065
     Dates: start: 20080418, end: 20080418
  13. CARBOPLATIN [Suspect]
     Route: 065
     Dates: start: 20080604, end: 20080604
  14. NEUPOGEN [Suspect]
     Indication: DRUG USE FOR UNKNOWN INDICATION
     Route: 065
     Dates: start: 20080422, end: 20080429
  15. NEUPOGEN [Suspect]
     Route: 065
     Dates: start: 20080608, end: 20080615

REACTIONS (7)
  - ANAEMIA [None]
  - CHOLECYSTITIS ACUTE [None]
  - FEBRILE NEUTROPENIA [None]
  - HEPATOTOXICITY [None]
  - INFECTION [None]
  - THROMBOCYTOPENIA [None]
  - UROSEPSIS [None]
